FAERS Safety Report 9862137 (Version 5)
Quarter: 2018Q2

REPORT INFORMATION
  Report Type: Report from Study
  Country: US (occurrence: US)
  Receive Date: 20140203
  Receipt Date: 20180501
  Transmission Date: 20180711
  Serious: Yes (Life-Threatening, Hospitalization, Other)
  Sender: FDA-Public Use
  Company Number: US-ROCHE-1328108

PATIENT
  Age: 34 Year
  Sex: Female

DRUGS (63)
  1. RANIBIZUMAB. [Suspect]
     Active Substance: RANIBIZUMAB
     Indication: DIABETIC RETINOPATHY
     Dosage: LEFT EYE
     Route: 065
     Dates: start: 20120612
  2. RANIBIZUMAB. [Suspect]
     Active Substance: RANIBIZUMAB
     Dosage: LEFT EYE
     Route: 065
     Dates: start: 20130219
  3. RANIBIZUMAB. [Suspect]
     Active Substance: RANIBIZUMAB
     Dosage: LEFT EYE
     Route: 065
     Dates: start: 20130528
  4. RANIBIZUMAB. [Suspect]
     Active Substance: RANIBIZUMAB
     Dosage: LEFT EYE
     Route: 065
     Dates: start: 20131210
  5. RANIBIZUMAB. [Suspect]
     Active Substance: RANIBIZUMAB
     Dosage: LEFT EYE
     Route: 065
     Dates: start: 20140114
  6. COREG [Concomitant]
     Active Substance: CARVEDILOL
     Route: 048
     Dates: start: 20140114
  7. CLONIDINE. [Concomitant]
     Active Substance: CLONIDINE
     Route: 048
  8. CLONIDINE. [Concomitant]
     Active Substance: CLONIDINE
     Route: 048
     Dates: start: 20160609
  9. RANIBIZUMAB. [Suspect]
     Active Substance: RANIBIZUMAB
     Dosage: LEFT EYE
     Route: 065
     Dates: start: 20121127
  10. RANIBIZUMAB. [Suspect]
     Active Substance: RANIBIZUMAB
     Dosage: LEFT EYE
     Route: 065
     Dates: start: 20140711
  11. CITRACAL + D [Concomitant]
     Active Substance: CALCIUM CITRATE\VITAMIN D
     Route: 048
  12. ATROPINE. [Concomitant]
     Active Substance: ATROPINE
     Dosage: ROUTE: GTT,?1% GTT-DROPS
     Route: 065
     Dates: start: 20130812
  13. REGLAN [Concomitant]
     Active Substance: METOCLOPRAMIDE HYDROCHLORIDE
     Dosage: } 1 PER DAY
     Route: 048
     Dates: start: 20131029
  14. ENBREL [Concomitant]
     Active Substance: ETANERCEPT
     Route: 058
     Dates: start: 20150501
  15. FERROUS SULFATE. [Concomitant]
     Active Substance: FERROUS SULFATE
     Indication: ANAEMIA
     Route: 048
  16. AMLODIPINE [Concomitant]
     Active Substance: AMLODIPINE BESYLATE
     Route: 048
     Dates: start: 20120710
  17. PREDNISOLONE ACETATE. [Concomitant]
     Active Substance: PREDNISOLONE ACETATE
     Indication: IRITIS
     Route: 065
     Dates: start: 20161005
  18. RANIBIZUMAB. [Suspect]
     Active Substance: RANIBIZUMAB
     Dosage: LEFT EYE
     Route: 065
     Dates: start: 20130917
  19. RANIBIZUMAB. [Suspect]
     Active Substance: RANIBIZUMAB
     Dosage: LEFT EYE
     Route: 065
     Dates: start: 20140430
  20. ZYLET [Concomitant]
     Active Substance: LOTEPREDNOL ETABONATE\TOBRAMYCIN
     Dosage: 0.3-0.5% GTT DROPS,?ROUTE GTT.
     Route: 065
     Dates: start: 20130812
  21. LASIX [Concomitant]
     Active Substance: FUROSEMIDE
     Route: 048
     Dates: start: 20140114
  22. NEURONTIN [Concomitant]
     Active Substance: GABAPENTIN
     Route: 048
  23. LISINOPRIL. [Concomitant]
     Active Substance: LISINOPRIL
     Route: 048
  24. BEVACIZUMAB. [Suspect]
     Active Substance: BEVACIZUMAB
     Indication: AGE-RELATED MACULAR DEGENERATION
     Dosage: ONE TIME TREATMENT
     Route: 050
     Dates: start: 20120711
  25. CYMBALTA [Concomitant]
     Active Substance: DULOXETINE HYDROCHLORIDE
     Route: 048
  26. ZYLET [Concomitant]
     Active Substance: LOTEPREDNOL ETABONATE\TOBRAMYCIN
     Dosage: 1/GTT DROPS?ROUTE:GTT
     Route: 065
     Dates: start: 20140120
  27. DUREZOL [Concomitant]
     Active Substance: DIFLUPREDNATE
     Dosage: ROUTE: GTT
     Route: 065
     Dates: start: 20140120
  28. RANIBIZUMAB. [Suspect]
     Active Substance: RANIBIZUMAB
     Dosage: LEFT EYE
     Route: 065
     Dates: start: 20130116
  29. RANIBIZUMAB. [Suspect]
     Active Substance: RANIBIZUMAB
     Dosage: LEFT EYE
     Route: 065
     Dates: start: 20130402
  30. RANIBIZUMAB. [Suspect]
     Active Substance: RANIBIZUMAB
     Dosage: LEFT EYE
     Route: 065
     Dates: start: 20130430
  31. RANIBIZUMAB. [Suspect]
     Active Substance: RANIBIZUMAB
     Dosage: LEFT EYE
     Route: 065
     Dates: start: 20130816
  32. RANIBIZUMAB. [Suspect]
     Active Substance: RANIBIZUMAB
     Dosage: LEFT EYE
     Route: 065
     Dates: start: 20131108
  33. NABUMETONE. [Concomitant]
     Active Substance: NABUMETONE
     Route: 048
  34. INSULIN LISPRO [Concomitant]
     Active Substance: INSULIN LISPRO
     Route: 058
  35. AMITRIPTYLINE [Concomitant]
     Active Substance: AMITRIPTYLINE
     Route: 048
     Dates: start: 201302
  36. HUMIRA [Concomitant]
     Active Substance: ADALIMUMAB
     Route: 048
  37. RANIBIZUMAB. [Suspect]
     Active Substance: RANIBIZUMAB
     Dosage: LEFT EYE
     Route: 065
     Dates: start: 20120925
  38. RANIBIZUMAB. [Suspect]
     Active Substance: RANIBIZUMAB
     Dosage: LEFT EYE
     Route: 065
     Dates: start: 20140328
  39. RANIBIZUMAB. [Suspect]
     Active Substance: RANIBIZUMAB
     Dosage: LEFT EYE
     Route: 065
     Dates: start: 20160216
  40. ZYLET [Concomitant]
     Active Substance: LOTEPREDNOL ETABONATE\TOBRAMYCIN
     Dosage: 0.3-0.5% GTT DROPS,?ROUTE GTT.
     Route: 065
     Dates: start: 20120716
  41. LASIX [Concomitant]
     Active Substance: FUROSEMIDE
     Route: 048
  42. DUREZOL [Concomitant]
     Active Substance: DIFLUPREDNATE
     Dosage: ROUTE: GTT
     Route: 065
     Dates: start: 20120810
  43. ACETAMINOPHEN. [Concomitant]
     Active Substance: ACETAMINOPHEN
     Route: 048
  44. INSULIN DETEMIR [Concomitant]
     Active Substance: INSULIN DETEMIR
     Route: 058
  45. FLONASE [Concomitant]
     Active Substance: FLUTICASONE PROPIONATE
     Dosage: 1/PUFF
     Route: 045
     Dates: start: 20140513
  46. VITAMIN D3 [Concomitant]
     Active Substance: CHOLECALCIFEROL
     Dosage: 1000/UNITS,
     Route: 048
  47. ATROPINE SULFATE. [Concomitant]
     Active Substance: ATROPINE SULFATE
     Dosage: ROUTE:GTT,?1% GTT
     Route: 065
     Dates: start: 20120717
  48. SPIRONOLACTONE. [Concomitant]
     Active Substance: SPIRONOLACTONE
     Indication: RENAL FAILURE
     Route: 048
  49. THYROXIN [Concomitant]
     Active Substance: LEVOTHYROXINE
     Route: 048
  50. LOSARTAN. [Concomitant]
     Active Substance: LOSARTAN
     Route: 048
  51. PROCARDIA (UNITED STATES) [Concomitant]
     Route: 048
     Dates: start: 20121119
  52. PRAVASTATIN. [Concomitant]
     Active Substance: PRAVASTATIN
     Route: 048
  53. PREDNISOLONE ACETATE. [Concomitant]
     Active Substance: PREDNISOLONE ACETATE
     Route: 065
     Dates: start: 20170120
  54. LEVOTHYROXINE. [Concomitant]
     Active Substance: LEVOTHYROXINE
     Indication: HYPOTHYROIDISM
     Route: 048
  55. RANIBIZUMAB. [Suspect]
     Active Substance: RANIBIZUMAB
     Dosage: LEFT EYE
     Route: 065
     Dates: start: 20130709
  56. PROCRIT [Concomitant]
     Active Substance: ERYTHROPOIETIN
     Route: 058
  57. LOSARTAN. [Concomitant]
     Active Substance: LOSARTAN
     Indication: HYPERTENSION
     Route: 048
  58. LANTUS [Concomitant]
     Active Substance: INSULIN GLARGINE
     Dosage: 100/UNITS
     Route: 058
  59. LEVOTHYROXINE SODIUM. [Concomitant]
     Active Substance: LEVOTHYROXINE SODIUM
     Route: 048
  60. BACTRIM DS [Concomitant]
     Active Substance: SULFAMETHOXAZOLE\TRIMETHOPRIM
     Indication: URINARY TRACT INFECTION
     Route: 048
     Dates: start: 20140910
  61. CELEXA [Concomitant]
     Active Substance: CITALOPRAM HYDROBROMIDE
     Indication: DEPRESSION
     Route: 048
     Dates: start: 20161003
  62. NOVOLOG [Concomitant]
     Active Substance: INSULIN ASPART
     Indication: DIABETES MELLITUS
     Dosage: MORE THAN ONE TIME A DAY
     Route: 058
     Dates: start: 20151204
  63. PROCRIT [Concomitant]
     Active Substance: ERYTHROPOIETIN
     Indication: ANAEMIA
     Route: 058

REACTIONS (9)
  - Hypoglycaemia [Recovered/Resolved]
  - Pancreatitis [Unknown]
  - Diabetic ketoacidosis [Recovered/Resolved]
  - Hypertension [Recovered/Resolved]
  - Impaired gastric emptying [Not Recovered/Not Resolved]
  - Pancreatitis [Recovered/Resolved]
  - Gastroenteritis [Recovered/Resolved]
  - Leukocytosis [Recovered/Resolved]
  - Appendicitis [Recovered/Resolved]

NARRATIVE: CASE EVENT DATE: 20131029
